FAERS Safety Report 7249008-1 (Version None)
Quarter: 2011Q1

REPORT INFORMATION
  Report Type: 
  Country: None (occurrence: None)
  Receive Date: 20110128
  Receipt Date: 20110125
  Transmission Date: 20110831
  Serious: Yes (Hospitalization)
  Sender: FDA-Public Use
  Company Number: DE-BRISTOL-MYERS SQUIBB COMPANY-14655500

PATIENT
  Age: 44 Year
  Sex: Male
  Weight: 69 kg

DRUGS (2)
  1. XELODA [Suspect]
     Indication: GASTROOESOPHAGEAL CANCER
     Dosage: ON DAY 1-15;1ST INF ON 02APR09;RECENT INF 07MAY09 FORM = TABS
     Route: 048
     Dates: start: 20090402, end: 20090508
  2. CISPLATIN [Suspect]
     Indication: GASTROOESOPHAGEAL CANCER
     Dosage: ON DAY 1 OF CYCLE;1ST INF ON 01APR09;RECENT INFUSION 27APR09
     Route: 042
     Dates: start: 20090401, end: 20090515

REACTIONS (2)
  - SUBARACHNOID HAEMORRHAGE [None]
  - CONVULSION [None]
